FAERS Safety Report 9106693 (Version 1)
Quarter: 2013Q1

REPORT INFORMATION
  Report Type: Spontaneous
  Country: US (occurrence: US)
  Receive Date: 20130221
  Receipt Date: 20130221
  Transmission Date: 20140127
  Serious: Yes (Death, Hospitalization)
  Sender: FDA-Public Use
  Company Number: US-BAXTER-2013BAX003411

PATIENT
  Age: 55 Year
  Sex: Female

DRUGS (1)
  1. DIANEAL LOW CALCIUM [Suspect]
     Indication: PERITONEAL DIALYSIS
     Route: 033
     Dates: end: 20130127

REACTIONS (4)
  - Subcutaneous abscess [Fatal]
  - Staphylococcal infection [Fatal]
  - Infection [Recovering/Resolving]
  - Furuncle [Recovering/Resolving]
